FAERS Safety Report 4465632-3 (Version None)
Quarter: 2004Q4

REPORT INFORMATION
  Report Type: 
  Country: None (occurrence: None)
  Receive Date: 20041004
  Receipt Date: 20040923
  Transmission Date: 20050328
  Serious: Yes (Hospitalization)
  Sender: FDA-Public Use
  Company Number: PHHO2004DE13448

PATIENT
  Age: 68 Year
  Sex: Male

DRUGS (4)
  1. VALSARTAN [Suspect]
     Indication: HYPERTENSION
     Dosage: 320 MG, QD
     Dates: end: 20040916
  2. AMLODIPINE [Suspect]
     Indication: HYPERTENSION
     Dosage: 5 MG, QD
  3. VALDECOXIB [Suspect]
  4. METOPROLOL [Suspect]

REACTIONS (4)
  - DERMATITIS EXFOLIATIVE [None]
  - EXANTHEM [None]
  - THROMBOSIS [None]
  - VASCULITIS [None]
